FAERS Safety Report 6385111-6 (Version None)
Quarter: 2009Q4

REPORT INFORMATION
  Report Type: 
  Country: None (occurrence: None)
  Receive Date: 20091002
  Receipt Date: 20090918
  Transmission Date: 20100525
  Serious: Yes (Other)
  Sender: FDA-Public Use
  Company Number: US-BRISTOL-MYERS SQUIBB COMPANY-14785349

PATIENT
  Sex: Female

DRUGS (1)
  1. ORENCIA [Suspect]

REACTIONS (5)
  - DEAFNESS [None]
  - DIZZINESS [None]
  - EAR DISCOMFORT [None]
  - ERYTHEMA [None]
  - PHARYNGEAL ERYTHEMA [None]
